FAERS Safety Report 9772258 (Version 2)
Quarter: 2013Q4

REPORT INFORMATION
  Report Type: Spontaneous
  Country: JP (occurrence: JP)
  Receive Date: 20131219
  Receipt Date: 20131227
  Transmission Date: 20140711
  Serious: Yes (Hospitalization, Other)
  Sender: FDA-Public Use
  Company Number: JP-ASTELLAS-2013JP013961

PATIENT
  Age: 54 Year
  Sex: Female

DRUGS (12)
  1. PROGRAF [Suspect]
     Indication: PROPHYLAXIS AGAINST GRAFT VERSUS HOST DISEASE
     Dosage: UNK
     Route: 048
     Dates: start: 201308, end: 201309
  2. METHOTREXATE [Suspect]
     Indication: PROPHYLAXIS AGAINST GRAFT VERSUS HOST DISEASE
     Dosage: UNK
     Route: 048
     Dates: start: 201308, end: 201309
  3. FLUDARA [Suspect]
     Indication: PREMEDICATION
     Dosage: UNK
     Route: 065
     Dates: start: 201308
  4. BUSULFAN [Suspect]
     Indication: PREMEDICATION
     Dosage: UNK
     Route: 065
     Dates: start: 201308
  5. ALKERAN /00006401/ [Suspect]
     Indication: PREMEDICATION
     Dosage: UNK
     Route: 065
     Dates: start: 201308
  6. GANCICLOVIR [Suspect]
     Indication: VIRAL INFECTION
     Dosage: UNK
     Route: 048
     Dates: start: 201309
  7. GANCICLOVIR [Suspect]
     Indication: GRAFT VERSUS HOST DISEASE
  8. GANCICLOVIR [Suspect]
     Indication: GASTROINTESTINAL HYPOMOTILITY
  9. CELLCEPT /01275102/ [Suspect]
     Indication: VIRAL INFECTION
     Dosage: UNK
     Route: 048
     Dates: start: 201309
  10. CELLCEPT /01275102/ [Suspect]
     Indication: GRAFT VERSUS HOST DISEASE
  11. CELLCEPT /01275102/ [Suspect]
     Indication: GASTROINTESTINAL HYPOMOTILITY
  12. NEORAL [Suspect]
     Indication: PROPHYLAXIS AGAINST GRAFT VERSUS HOST DISEASE
     Dosage: UNK
     Route: 048
     Dates: start: 201309

REACTIONS (3)
  - Drug ineffective [Unknown]
  - Acute graft versus host disease [Unknown]
  - Myelitis transverse [Recovered/Resolved]
